FAERS Safety Report 18538015 (Version 1)
Quarter: 2020Q4

REPORT INFORMATION
  Report Type: Spontaneous
  Country: US (occurrence: US)
  Receive Date: 20201124
  Receipt Date: 20201124
  Transmission Date: 20210114
  Serious: Yes (Other)
  Sender: FDA-Public Use
  Company Number: US-VISTAPHARM, INC.-VER202011-002010

PATIENT
  Age: 72 Year
  Sex: Male

DRUGS (7)
  1. INSULIN DRIP [Concomitant]
     Indication: HYPERGLYCAEMIA
     Dosage: UNKNOWN (DRIP)
     Route: 042
  2. ERYTHROMYCIN. [Concomitant]
     Active Substance: ERYTHROMYCIN
     Indication: SYMPTOMATIC TREATMENT
     Dosage: 300 MG
  3. ONDANSETRON [Concomitant]
     Active Substance: ONDANSETRON
     Indication: SYMPTOMATIC TREATMENT
     Dosage: UNKNOWN
  4. METOCLOPRAMIDE. [Suspect]
     Active Substance: METOCLOPRAMIDE
     Indication: SYMPTOMATIC TREATMENT
     Dosage: 5 MG
     Route: 042
  5. OXYCODONE [Concomitant]
     Active Substance: OXYCODONE
     Indication: PAIN
     Dosage: UNKNOWN
  6. HYDROCODONE/PARACETAMOL [Concomitant]
     Active Substance: ACETAMINOPHEN\HYDROCODONE BITARTRATE
     Indication: CERVICAL RADICULOPATHY
     Dosage: 7.5/750 MG
  7. HYDROMORPHONE [Concomitant]
     Active Substance: HYDROMORPHONE
     Indication: PAIN
     Dosage: UNKNOWN

REACTIONS (2)
  - Electrocardiogram QT prolonged [Recovered/Resolved]
  - Tachycardia [Recovered/Resolved]
